FAERS Safety Report 20676645 (Version 1)
Quarter: 2022Q2

REPORT INFORMATION
  Report Type: Spontaneous
  Country: CA (occurrence: CA)
  Receive Date: 20220406
  Receipt Date: 20220406
  Transmission Date: 20220721
  Serious: Yes (Hospitalization)
  Sender: FDA-Public Use
  Company Number: CA-TEVA-2022-CA-2023858

PATIENT
  Age: 63 Year
  Sex: Male
  Weight: 68 kg

DRUGS (33)
  1. FLUDARABINE [Suspect]
     Active Substance: FLUDARABINE PHOSPHATE
     Indication: Bone graft
     Route: 065
  2. BUSULFAN [Suspect]
     Active Substance: BUSULFAN
     Indication: Bone graft
     Route: 065
  3. THYMOGLOBULIN [Suspect]
     Active Substance: LAPINE T-LYMPHOCYTE IMMUNE GLOBULIN
     Indication: Bone graft
     Route: 065
  4. THYMOGLOBULIN [Suspect]
     Active Substance: LAPINE T-LYMPHOCYTE IMMUNE GLOBULIN
     Route: 065
  5. VITAMIN D [Concomitant]
     Active Substance: VITAMIN D NOS
  6. VITAMIN C [Concomitant]
     Active Substance: ASCORBIC ACID
  7. VITAMIN B12 [Concomitant]
     Active Substance: CYANOCOBALAMIN
  8. VALACYCLOVIR [Concomitant]
     Active Substance: VALACYCLOVIR HYDROCHLORIDE
  9. URSODIOL [Concomitant]
     Active Substance: URSODIOL
  10. SULFAMETHOXAZOLE\TRIMETHOPRIM [Concomitant]
     Active Substance: SULFAMETHOXAZOLE\TRIMETHOPRIM
  11. TACROLIMUS [Concomitant]
     Active Substance: TACROLIMUS
  12. SELENIUM [Concomitant]
     Active Substance: SELENIUM
  13. PROCHLORPERAZINE [Concomitant]
     Active Substance: PROCHLORPERAZINE
  14. POLYETHYLENE GLYCOL 3350 [Concomitant]
     Active Substance: POLYETHYLENE GLYCOL 3350
     Route: 065
  15. PANTOPRAZOLE [Concomitant]
     Active Substance: PANTOPRAZOLE
  16. PANCREATIN [Concomitant]
     Active Substance: PANCRELIPASE
  17. ONDANSETRON [Concomitant]
     Active Substance: ONDANSETRON
  18. METOCLOPRAMIDE [Concomitant]
     Active Substance: METOCLOPRAMIDE
  19. METHYLPREDNISOLONE SODIUM SUCCINATE [Concomitant]
     Active Substance: METHYLPREDNISOLONE SODIUM SUCCINATE
  20. METHOTREXATE [Concomitant]
     Active Substance: METHOTREXATE
  21. NYSTATIN [Concomitant]
     Active Substance: NYSTATIN
  22. LUGOLS SOL [Concomitant]
  23. LORAZEPAM [Concomitant]
     Active Substance: LORAZEPAM
     Route: 065
  24. LIVER EXTRACT [Concomitant]
     Active Substance: MAMMAL LIVER
  25. LEVETIRACETAM [Concomitant]
     Active Substance: LEVETIRACETAM
  26. HYDROMORPHONE [Concomitant]
     Active Substance: HYDROMORPHONE
  27. FUROSEMIDE [Concomitant]
     Active Substance: FUROSEMIDE
     Route: 065
  28. DIPHENHYDRAMINE [Concomitant]
     Active Substance: DIPHENHYDRAMINE
  29. DEXAMETHASONE [Concomitant]
     Active Substance: DEXAMETHASONE
     Route: 065
  30. CASPOFUNGIN [Concomitant]
     Active Substance: CASPOFUNGIN
  31. BETAINE [Concomitant]
     Active Substance: BETAINE
  32. ACYCLOVIR [Concomitant]
     Active Substance: ACYCLOVIR
  33. ACETAMINOPHEN [Concomitant]
     Active Substance: ACETAMINOPHEN

REACTIONS (1)
  - Febrile neutropenia [Recovered/Resolved]
